FAERS Safety Report 5284476-6 (Version None)
Quarter: 2007Q2

REPORT INFORMATION
  Report Type: 
  Country: None (occurrence: None)
  Receive Date: 20070403
  Receipt Date: 20070329
  Transmission Date: 20071010
  Serious: Yes (Other)
  Sender: FDA-Public Use
  Company Number: JP-SP-2007-00944

PATIENT
  Age: 90 Year
  Sex: Male

DRUGS (3)
  1. IMMUCYST [Suspect]
     Indication: CARCINOMA IN SITU OF BLADDER
     Route: 043
     Dates: start: 20061101, end: 20061229
  2. TAMSULOSIN HCL [Concomitant]
     Dates: start: 20061101, end: 20061220
  3. BETHANECHOL CHLORIDE [Concomitant]
     Dates: start: 20061101, end: 20061220

REACTIONS (1)
  - CARDIAC FAILURE [None]
